FAERS Safety Report 23885458 (Version 2)
Quarter: 2024Q3

REPORT INFORMATION
  Report Type: Spontaneous
  Country: CA (occurrence: CA)
  Receive Date: 20240522
  Receipt Date: 20240919
  Transmission Date: 20241016
  Serious: Yes (Other)
  Sender: SANDOZ
  Company Number: CA-SANDOZ-SDZ2024CA050843

PATIENT
  Age: 3 Year
  Sex: Male

DRUGS (13)
  1. ADVIL [Suspect]
     Active Substance: IBUPROFEN\IBUPROFEN SODIUM
     Indication: Procedural pain
     Dosage: 150 MG,1 EVERY .25 DAYS
     Route: 048
  2. KETOROLAC [Suspect]
     Active Substance: KETOROLAC TROMETHAMINE
     Indication: Procedural pain
     Dosage: 8 MG, 1 EVERY 25 DAYS
     Route: 042
  3. KETOROLAC [Suspect]
     Active Substance: KETOROLAC TROMETHAMINE
     Dosage: UNK
     Route: 042
  4. ACETAMINOPHEN [Concomitant]
     Active Substance: ACETAMINOPHEN
     Indication: Product used for unknown indication
     Dosage: 240 MG, Q6H
     Route: 048
  5. ACETAMINOPHEN [Concomitant]
     Active Substance: ACETAMINOPHEN
     Dosage: 240 MG, 1 EVERY .25 DAYS
     Route: 048
  6. ACETAMINOPHEN [Concomitant]
     Active Substance: ACETAMINOPHEN
     Dosage: UNK
     Route: 048
  7. FENTANYL [Concomitant]
     Active Substance: FENTANYL\FENTANYL CITRATE
     Indication: Product used for unknown indication
     Dosage: 15 UG, ONCE (INTRA-NASAL)
     Route: 045
  8. IRON SUCROSE [Concomitant]
     Active Substance: IRON SUCROSE
     Indication: Product used for unknown indication
     Dosage: 80 MG, ONCE
     Route: 042
  9. MORPHINE [Concomitant]
     Active Substance: MORPHINE
     Indication: Product used for unknown indication
     Dosage: 1 MG
     Route: 042
  10. MORPHINE [Concomitant]
     Active Substance: MORPHINE
     Dosage: 50 MG
     Route: 042
  11. ONDANSETRON [Concomitant]
     Active Substance: ONDANSETRON
     Indication: Product used for unknown indication
     Dosage: 1.5 MG, Q6H
     Route: 042
  12. PHYTONADIONE [Concomitant]
     Active Substance: PHYTONADIONE
     Indication: Product used for unknown indication
     Dosage: 5 MG, ONCE
     Route: 042
  13. PIPERACILLIN AND TAZOBACTAM [Concomitant]
     Active Substance: PIPERACILLIN SODIUM\TAZOBACTAM SODIUM
     Indication: Product used for unknown indication
     Dosage: 1200 MG, Q6H
     Route: 065

REACTIONS (9)
  - Abdominal distension [Recovered/Resolved]
  - Abdominal tenderness [Recovered/Resolved]
  - Discoloured vomit [Recovered/Resolved]
  - Erythema [Recovered/Resolved]
  - Faeces discoloured [Recovered/Resolved]
  - Gastric ulcer [Recovered/Resolved]
  - Gastritis erosive [Recovered/Resolved]
  - Haemoglobin decreased [Recovered/Resolved]
  - Diarrhoea [Recovered/Resolved]
